FAERS Safety Report 4412183-8 (Version None)
Quarter: 2004Q3

REPORT INFORMATION
  Report Type: 
  Country: None (occurrence: None)
  Receive Date: 20040727
  Receipt Date: 20040719
  Transmission Date: 20050211
  Serious: Yes (Hospitalization)
  Sender: FDA-Public Use
  Company Number: 04P-083-0267626-00

PATIENT
  Sex: Female

DRUGS (7)
  1. ISOPTIN [Suspect]
     Indication: ATRIAL FIBRILLATION
     Dosage: 160 MG, 1 IN 1 D, PER ORAL
     Route: 048
     Dates: start: 20040101, end: 20040702
  2. SPIRONOLACTONE [Suspect]
     Indication: ESSENTIAL HYPERTENSION
     Dosage: PER ORAL
     Route: 048
     Dates: start: 20040101, end: 20040702
  3. ASPIRIN [Concomitant]
  4. CITALOPRAM HYDROBROMIDE [Concomitant]
  5. MELLARIL [Concomitant]
  6. PANTOPRAZOLE SODIUM [Concomitant]
  7. ETIZOLAM [Concomitant]

REACTIONS (5)
  - ASTHENIA [None]
  - BRADYARRHYTHMIA [None]
  - HYPERKALAEMIA [None]
  - NODAL RHYTHM [None]
  - STUPOR [None]
